FAERS Safety Report 24541973 (Version 2)
Quarter: 2024Q4

REPORT INFORMATION
  Report Type: Spontaneous
  Country: US (occurrence: US)
  Receive Date: 20241023
  Receipt Date: 20241223
  Transmission Date: 20250114
  Serious: Yes (Other)
  Sender: SANOFI AVENTIS
  Company Number: US-SA-2024SA304496

PATIENT
  Age: 11 Year
  Sex: Male

DRUGS (2)
  1. ELOCTATE [Suspect]
     Active Substance: EFMOROCTOCOG ALFA
     Indication: Factor VIII deficiency
     Dosage: 2300 U, PRN
     Route: 042
     Dates: start: 202303
  2. ELOCTATE [Suspect]
     Active Substance: EFMOROCTOCOG ALFA
     Indication: Factor VIII deficiency
     Dosage: 2300 U, PRN
     Route: 042
     Dates: start: 202303

REACTIONS (7)
  - Seizure [Unknown]
  - Loss of consciousness [Unknown]
  - Haemorrhage [Not Recovered/Not Resolved]
  - Traumatic haemorrhage [Not Recovered/Not Resolved]
  - Ligament sprain [Unknown]
  - Face injury [Unknown]
  - Head injury [Unknown]

NARRATIVE: CASE EVENT DATE: 20241209
